FAERS Safety Report 24636010 (Version 2)
Quarter: 2024Q4

REPORT INFORMATION
  Report Type: Spontaneous
  Country: NL (occurrence: NL)
  Receive Date: 20241119
  Receipt Date: 20241128
  Transmission Date: 20250114
  Serious: Yes (Death, Life-Threatening, Other)
  Sender: CELLTRION
  Company Number: NL-ABBVIE-5570500

PATIENT

DRUGS (11)
  1. RITUXIMAB [Suspect]
     Active Substance: RITUXIMAB
     Indication: Non-Hodgkin^s lymphoma
     Dosage: DOSE-UNK
     Route: 042
     Dates: start: 20231124, end: 20231124
  2. HUMIRA [Suspect]
     Active Substance: ADALIMUMAB
     Indication: Colitis ulcerative
     Dosage: 160 MG
     Route: 058
     Dates: start: 20121218, end: 20121218
  3. HUMIRA [Suspect]
     Active Substance: ADALIMUMAB
     Dosage: 40 MG EVERY 2 WEEKS
     Route: 058
     Dates: start: 20121231, end: 202311
  4. LISINOPRIL [Concomitant]
     Active Substance: LISINOPRIL
     Indication: Hypertension
     Dosage: 10 MG EVERY 1 DAY
     Route: 048
     Dates: start: 20190918
  5. CARBASPIRIN CALCIUM [Concomitant]
     Active Substance: CARBASPIRIN CALCIUM
     Indication: Disease risk factor
     Dosage: 100 MG EVERY 1 DAY
     Route: 048
     Dates: start: 20191223
  6. HYDROCHLOROTHIAZIDE [Concomitant]
     Active Substance: HYDROCHLOROTHIAZIDE
     Indication: Hypertension
     Dosage: 12.5 MG EVERY 1 DAY
     Route: 048
     Dates: start: 20210524
  7. TACROLIMUS [Concomitant]
     Active Substance: TACROLIMUS
     Indication: Erythema
     Dosage: 0.5 DAY (DOSE UNIT: 2MGR MG)
     Route: 003
     Dates: start: 20210916
  8. CYCLOPHOSPHAMIDE [Concomitant]
     Active Substance: CYCLOPHOSPHAMIDE
     Indication: Non-Hodgkin^s lymphoma
     Dosage: DOSE -UNK
     Route: 065
     Dates: start: 20231124, end: 20231124
  9. DOXORUBICIN HYDROCHLORIDE [Concomitant]
     Active Substance: DOXORUBICIN HYDROCHLORIDE
     Indication: Non-Hodgkin^s lymphoma
     Dosage: UNK
     Route: 065
     Dates: start: 20231124, end: 20231124
  10. VINCRISTINE [Concomitant]
     Active Substance: VINCRISTINE
     Indication: Non-Hodgkin^s lymphoma
     Dosage: UNK
     Route: 065
     Dates: start: 20231124, end: 20231124
  11. PREDNISOLONE [Concomitant]
     Active Substance: PREDNISOLONE
     Indication: Non-Hodgkin^s lymphoma
     Dosage: UNK
     Route: 065
     Dates: start: 20231124, end: 20231124

REACTIONS (2)
  - Multiple organ dysfunction syndrome [Fatal]
  - Non-Hodgkin^s lymphoma [Recovered/Resolved]

NARRATIVE: CASE EVENT DATE: 20231126
